FAERS Safety Report 22040013 (Version 1)
Quarter: 2023Q1

REPORT INFORMATION
  Report Type: Spontaneous
  Country: US (occurrence: None)
  Receive Date: 20230224
  Receipt Date: 20230224
  Transmission Date: 20230418
  Serious: Yes (Hospitalization)
  Sender: FDA-Public Use
  Company Number: None

PATIENT
  Age: 80 Year
  Sex: Male
  Weight: 92.25 kg

DRUGS (2)
  1. CLOBETASOL [Suspect]
     Active Substance: CLOBETASOL
     Indication: Skin irritation
     Dosage: FREQUENCY : TWICE A DAY;?
     Route: 061
     Dates: end: 20230210
  2. TRIAMCINOLONE [Suspect]
     Active Substance: TRIAMCINOLONE

REACTIONS (6)
  - Cellulitis [None]
  - Secondary adrenocortical insufficiency [None]
  - Cardiac failure [None]
  - Hyponatraemia [None]
  - Cortisol decreased [None]
  - Therapy cessation [None]

NARRATIVE: CASE EVENT DATE: 20230204
